FAERS Safety Report 6810946-2 (Version None)
Quarter: 2010Q2

REPORT INFORMATION
  Report Type: 
  Country: None (occurrence: None)
  Receive Date: 20100630
  Receipt Date: 20080829
  Transmission Date: 20101027
  Serious: No
  Sender: FDA-Public Use
  Company Number: US-PFIZER INC-2008073437

PATIENT
  Sex: Female

DRUGS (1)
  1. ESTRING [Suspect]
     Indication: HORMONE REPLACEMENT THERAPY
     Dates: start: 20080801

REACTIONS (2)
  - NERVOUSNESS [None]
  - VULVOVAGINAL DISCOMFORT [None]
